FAERS Safety Report 5710485-6 (Version None)
Quarter: 2008Q2

REPORT INFORMATION
  Report Type: 
  Country: None (occurrence: None)
  Receive Date: 20080416
  Receipt Date: 20080407
  Transmission Date: 20081010
  Serious: Yes (Other)
  Sender: FDA-Public Use
  Company Number: 163-21880-07060716

PATIENT
  Age: 71 Year
  Sex: Female

DRUGS (1)
  1. REVLIMID [Suspect]
     Indication: MULTIPLE MYELOMA
     Dosage: 15 MG, X 21 DAYS, ORAL
     Route: 048
     Dates: start: 20060828, end: 20070501

REACTIONS (2)
  - DISEASE PROGRESSION [None]
  - METASTASES TO KIDNEY [None]
